FAERS Safety Report 22093589 (Version 1)
Quarter: 2023Q1

REPORT INFORMATION
  Report Type: Spontaneous
  Country: US (occurrence: None)
  Receive Date: 20230314
  Receipt Date: 20230314
  Transmission Date: 20230417
  Serious: Yes (Other)
  Sender: FDA-Public Use
  Company Number: None

PATIENT
  Age: 62 Year
  Sex: Female

DRUGS (3)
  1. HUMIRA [Suspect]
     Active Substance: ADALIMUMAB
     Indication: Rheumatoid arthritis
     Dosage: OTHER FREQUENCY : Q14DAYS;?
     Route: 058
     Dates: start: 20221223
  2. ESTRADIOL [Concomitant]
     Active Substance: ESTRADIOL
  3. FOLIC ACID [Concomitant]
     Active Substance: FOLIC ACID

REACTIONS (2)
  - Rheumatoid arthritis [None]
  - Arthropathy [None]

NARRATIVE: CASE EVENT DATE: 20230314
